FAERS Safety Report 13557176 (Version 3)
Quarter: 2017Q4

REPORT INFORMATION
  Report Type: Spontaneous
  Country: JP (occurrence: JP)
  Receive Date: 20170518
  Receipt Date: 20171221
  Transmission Date: 20180320
  Serious: Yes (Death, Life-Threatening, Other)
  Sender: FDA-Public Use
  Company Number: JP-GLENMARK PHARMACEUTICALS-2017GMK027490

PATIENT
  Age: 62 Year
  Sex: Male

DRUGS (1)
  1. SULFAMETHOXAZOLE/TRIMETHOPRIM [Suspect]
     Active Substance: SULFAMETHOXAZOLE\TRIMETHOPRIM
     Indication: ABSCESS
     Dosage: TRIMETHOPRIM 320 MG, SULFAMETHOXAZOLE 1,600 MG, QD
     Route: 065

REACTIONS (3)
  - Human herpesvirus 6 infection [Fatal]
  - Renal failure [Fatal]
  - Drug reaction with eosinophilia and systemic symptoms [Recovered/Resolved]
